FAERS Safety Report 8298322-X (Version None)
Quarter: 2012Q2

REPORT INFORMATION
  Report Type: 
  Country: None (occurrence: None)
  Receive Date: 20120419
  Receipt Date: 20120416
  Transmission Date: 20120825
  Serious: Yes (Hospitalization, Other)
  Sender: FDA-Public Use
  Company Number: PHHY2011DE71512

PATIENT
  Sex: Female

DRUGS (2)
  1. PANTOPRAZOLE [Concomitant]
     Dosage: 40 MG, QD
  2. TASIGNA [Suspect]
     Indication: CHRONIC MYELOID LEUKAEMIA
     Dosage: 400 MG, BID
     Route: 048
     Dates: start: 20100611, end: 20110809

REACTIONS (11)
  - VOMITING [None]
  - BLOOD GLUCOSE INCREASED [None]
  - BARRETT'S OESOPHAGUS [None]
  - BACK PAIN [None]
  - LIPASE INCREASED [None]
  - HAEMATOCRIT DECREASED [None]
  - ABDOMINAL PAIN [None]
  - PANCREATITIS [None]
  - PANCREATIC CALCIFICATION [None]
  - WHITE BLOOD CELL COUNT INCREASED [None]
  - HAEMOGLOBIN DECREASED [None]
